FAERS Safety Report 13286102 (Version 1)
Quarter: 2017Q1

REPORT INFORMATION
  Report Type: Spontaneous
  Country: FR (occurrence: FR)
  Receive Date: 20170301
  Receipt Date: 20170301
  Transmission Date: 20170428
  Serious: Yes (Hospitalization)
  Sender: FDA-Public Use
  Company Number: FR-ALLERGAN-1707144US

PATIENT
  Age: 69 Year
  Sex: Male

DRUGS (1)
  1. SILODOSIN - BP [Suspect]
     Active Substance: SILODOSIN
     Indication: PROSTATIC ADENOMA
     Dosage: 1 DF, QD
     Route: 048
     Dates: start: 20110101, end: 201606

REACTIONS (6)
  - Diarrhoea [Recovered/Resolved]
  - Prostatic pain [Unknown]
  - Product use issue [Unknown]
  - Tetany [Unknown]
  - Syncope [Recovered/Resolved]
  - Blood pressure decreased [Unknown]

NARRATIVE: CASE EVENT DATE: 201508
